FAERS Safety Report 7159364-0 (Version None)
Quarter: 2010Q4

REPORT INFORMATION
  Report Type: 
  Country: None (occurrence: None)
  Receive Date: 20101214
  Receipt Date: 20100824
  Transmission Date: 20110411
  Serious: No
  Sender: FDA-Public Use
  Company Number: US-ASTRAZENECA-2010SE39843

PATIENT
  Age: 58 Year
  Sex: Female
  Weight: 60.3 kg

DRUGS (6)
  1. CRESTOR [Suspect]
     Indication: BLOOD CHOLESTEROL INCREASED
     Route: 048
     Dates: start: 20060903, end: 20080101
  2. CRESTOR [Suspect]
     Route: 048
     Dates: start: 20080101, end: 20100611
  3. NIASPAN [Concomitant]
  4. FASOMAX [Concomitant]
  5. FISH OIL [Concomitant]
  6. CLINIPRIL [Concomitant]

REACTIONS (2)
  - BLOOD TRIGLYCERIDES DECREASED [None]
  - MYALGIA [None]
